FAERS Safety Report 8487386 (Version 2)
Quarter: 2012Q4

REPORT INFORMATION
  Report Type: Spontaneous
  Country: GB (occurrence: None)
  Receive Date: 20120326
  Receipt Date: 20120823
  Transmission Date: 20130627
  Serious: Yes (Death, Hospitalization)
  Sender: FDA-Public Use
  Company Number: 2012AP000711

PATIENT
  Age: 75 Year
  Sex: Male

DRUGS (11)
  1. LEFLUNOMIDE [Suspect]
     Indication: RHEUMATOID ARTHRITIS
     Dosage: 10 MG;UNKNOWN;PO;BID
     Route: 048
     Dates: start: 20111206, end: 20120227
  2. METHOTREXATE [Suspect]
     Indication: RHEUMATOID ARTHRITIS
     Dosage: 7.5 MG;UNKNOWN;SC;QD
     Route: 058
     Dates: start: 20111206, end: 20120227
  3. DICLOFENAC (DICLOFENAC) UNKNOWN:UNKNOWN [Concomitant]
  4. FLUTICASONE (FLUTICASONE) UNKNOWN:UNKNOWN [Concomitant]
  5. FOLIC ACID (FOLIC ACID) UNKNOWN: UNKNOWN [Concomitant]
  6. LANSOPRAZOLE (LANSOPRAZOLE) UNKNOWN:UNKNOWN [Concomitant]
  7. PARACETAMOL (PARACETAMOL) UNKNOWN:UNKNOWN [Concomitant]
  8. PREDNISOLONE [Concomitant]
  9. QUININE (QUININE) UNKNOWN:UNKNOWN [Concomitant]
  10. SIMVASTATIN (SIMVASTATIN) UNKNOWN:UNKNOWN [Concomitant]
  11. TRAMADOL (TRAMADOL) UNKNOWN:UNKNOWN [Concomitant]

REACTIONS (3)
  - PNEUMONIA [None]
  - PNEUMONITIS [None]
  - GENERAL PHYSICAL HEALTH DETERIORATION [None]
